FAERS Safety Report 13401922 (Version 2)
Quarter: 2017Q2

REPORT INFORMATION
  Report Type: Spontaneous
  Country: DE (occurrence: DE)
  Receive Date: 20170404
  Receipt Date: 20170417
  Transmission Date: 20170830
  Serious: Yes (Other)
  Sender: FDA-Public Use
  Company Number: DE-MYLANLABS-2017M1020379

PATIENT

DRUGS (2)
  1. LORAZEPAM RATIOPHARM [Suspect]
     Active Substance: LORAZEPAM
     Indication: SEDATION
     Dosage: UNK
     Dates: start: 2013, end: 2017
  2. LORAZEPAM DURA 2,5 MG TABLETTEN [Suspect]
     Active Substance: LORAZEPAM
     Indication: SEDATION
     Dosage: 2.5 MG, UNK
     Route: 048
     Dates: start: 2012, end: 2017

REACTIONS (2)
  - Drug use disorder [Recovered/Resolved with Sequelae]
  - Intentional product misuse [Recovered/Resolved with Sequelae]

NARRATIVE: CASE EVENT DATE: 20130716
